FAERS Safety Report 6522256-1 (Version None)
Quarter: 2009Q4

REPORT INFORMATION
  Report Type: 
  Country: None (occurrence: None)
  Receive Date: 20091229
  Receipt Date: 20091229
  Transmission Date: 20100525
  Serious: No
  Sender: FDA-Public Use
  Company Number: None

PATIENT
  Age: 55 Year
  Sex: Male
  Weight: 22.6 kg

DRUGS (2)
  1. REGULAR INSULIN [Suspect]
     Indication: DIABETES MELLITUS
     Dosage: 20 UNITS SQ Q1900
     Route: 058
     Dates: start: 20091025
  2. INSULIN GLARGINE [Suspect]
     Indication: DIABETES MELLITUS
     Dosage: 20 UNITS SQ QHS
     Route: 058
     Dates: start: 20091123

REACTIONS (4)
  - HYPOGLYCAEMIA [None]
  - RESPIRATORY DISTRESS [None]
  - UNRESPONSIVE TO STIMULI [None]
  - VOMITING [None]
